FAERS Safety Report 20824003 (Version 1)
Quarter: 2022Q2

REPORT INFORMATION
  Report Type: Report from Study
  Country: FR (occurrence: FR)
  Receive Date: 20220513
  Receipt Date: 20220513
  Transmission Date: 20220721
  Serious: Yes (Death, Hospitalization)
  Sender: FDA-Public Use
  Company Number: FR-TAKEDA-2019TUS047712

PATIENT
  Sex: Male
  Weight: 81 kg

DRUGS (2)
  1. REVLIMID [Suspect]
     Active Substance: LENALIDOMIDE
     Indication: Small cell lung cancer
  2. IXAZOMIB [Suspect]
     Active Substance: IXAZOMIB
     Indication: Small cell lung cancer
     Dosage: 4 MILLIGRAM
     Dates: start: 20180426

REACTIONS (7)
  - Hyperthermia [Fatal]
  - Asthenia [Recovering/Resolving]
  - General physical health deterioration [Fatal]
  - Chest pain [Fatal]
  - Dyspnoea exertional [Unknown]
  - Diarrhoea [Recovered/Resolved]
  - Intentional product use issue [Unknown]

NARRATIVE: CASE EVENT DATE: 20180712
